FAERS Safety Report 6217572-7 (Version None)
Quarter: 2009Q2

REPORT INFORMATION
  Report Type: 
  Country: None (occurrence: None)
  Receive Date: 20090608
  Receipt Date: 20090303
  Transmission Date: 20091009
  Serious: No
  Sender: FDA-Public Use
  Company Number: A0771351A

PATIENT
  Age: 59 Year
  Sex: Female

DRUGS (4)
  1. WELLBUTRIN XL [Suspect]
     Indication: DEPRESSION
     Dosage: 150MG PER DAY
     Route: 048
  2. NEURONTIN [Concomitant]
  3. XANAX [Concomitant]
  4. LUNESTA [Concomitant]

REACTIONS (4)
  - ABDOMINAL PAIN UPPER [None]
  - ABNORMAL DREAMS [None]
  - AGITATION [None]
  - INSOMNIA [None]
